FAERS Safety Report 17086030 (Version 1)
Quarter: 2019Q4

REPORT INFORMATION
  Report Type: Spontaneous
  Country: US (occurrence: US)
  Receive Date: 20191030
  Receipt Date: 20191030
  Transmission Date: 20200122
  Serious: No
  Sender: FDA-Public Use
  Company Number: None

PATIENT
  Age: 62 Year
  Sex: Female

DRUGS (1)
  1. SOFOSBUVIR / VELPATASVIR 400-100 MG [Suspect]
     Active Substance: SOFOSBUVIR\VELPATASVIR
     Dosage: ?          OTHER DOSE:400/100 ;?
     Route: 048
     Dates: start: 20191021

REACTIONS (3)
  - Headache [None]
  - Diarrhoea [None]
  - Fatigue [None]

NARRATIVE: CASE EVENT DATE: 20191030
